FAERS Safety Report 9889018 (Version 1)
Quarter: 2014Q1

REPORT INFORMATION
  Report Type: Spontaneous
  Country: US (occurrence: US)
  Receive Date: 20140211
  Receipt Date: 20140211
  Transmission Date: 20141002
  Serious: Yes (Hospitalization, Other)
  Sender: FDA-Public Use
  Company Number: US-BAYER-2014-019016

PATIENT
  Age: 21 Year
  Sex: Female
  Weight: 78.87 kg

DRUGS (9)
  1. YASMIN [Suspect]
  2. YAZ [Suspect]
  3. DARVOCET [Concomitant]
  4. TOPAMAX [Concomitant]
     Dosage: UNK
     Dates: start: 20050503
  5. TRAZODONE [Concomitant]
     Dosage: UNK
     Dates: start: 20050503
  6. LORTAB [Concomitant]
     Dosage: 7.5 MG, 1-2 EVERY 6 HOURS
     Dates: start: 20050503
  7. LORTAB [Concomitant]
     Dosage: 7.5 MG,  1-2 EVERY 6 HOURS
     Dates: start: 20060829
  8. CELEXA [Concomitant]
     Dosage: 30-40 MG DAILY
     Dates: start: 20050503
  9. CELEXA [Concomitant]
     Dosage: 30-40 MG DAILY
     Dates: start: 20060829

REACTIONS (4)
  - Pulmonary embolism [None]
  - Deep vein thrombosis [None]
  - Cholecystitis chronic [None]
  - Biliary dyskinesia [None]
